FAERS Safety Report 7101725-X (Version None)
Quarter: 2010Q4

REPORT INFORMATION
  Report Type: 
  Country: None (occurrence: None)
  Receive Date: 20101115
  Receipt Date: 20101104
  Transmission Date: 20110411
  Serious: Yes (Hospitalization)
  Sender: FDA-Public Use
  Company Number: US-ASTRAZENECA-2010SE52476

PATIENT
  Age: 54 Year
  Sex: Female

DRUGS (4)
  1. PULMICORT RESPULES [Suspect]
     Indication: ASTHMA
     Route: 055
     Dates: start: 20050101
  2. EFFEXOR [Suspect]
     Dates: start: 20100401
  3. CLONAZEPAM [Concomitant]
  4. ALBUTEROL [Concomitant]

REACTIONS (4)
  - ANAPHYLACTIC SHOCK [None]
  - ASTHMA [None]
  - CHEST DISCOMFORT [None]
  - DRUG INEFFECTIVE [None]
